FAERS Safety Report 22204381 (Version 7)
Quarter: 2023Q4

REPORT INFORMATION
  Report Type: Spontaneous
  Country: CA (occurrence: CA)
  Receive Date: 20230412
  Receipt Date: 20231226
  Transmission Date: 20240110
  Serious: Yes (Other)
  Sender: FDA-Public Use
  Company Number: CA-CELLTRION INC.-2022CA009621

PATIENT

DRUGS (21)
  1. INFLECTRA [Suspect]
     Active Substance: INFLIXIMAB-DYYB
     Indication: Crohn^s disease
     Dosage: 5 MG/KG, AT WEEK 0, 2 AND 6 THEN Q 8 WEEKS
     Route: 042
     Dates: start: 20220427
  2. INFLECTRA [Suspect]
     Active Substance: INFLIXIMAB-DYYB
     Dosage: 500 MG
     Route: 042
     Dates: start: 20220511
  3. INFLECTRA [Suspect]
     Active Substance: INFLIXIMAB-DYYB
     Dosage: 5 MG/KG, AT WEEK 0, 2 AND 6 THEN Q 8 WEEKS
     Route: 042
     Dates: start: 20220611
  4. INFLECTRA [Suspect]
     Active Substance: INFLIXIMAB-DYYB
     Dosage: 5 MG/KG (500 MG), AT WEEK 0, 2 AND 6 THEN Q 8 WEEKS
     Route: 042
     Dates: start: 20220802
  5. INFLECTRA [Suspect]
     Active Substance: INFLIXIMAB-DYYB
     Dosage: 5 MG/KG (500 MG), AT WEEK 0, 2 AND 6 THEN Q 8 WEEKS
     Route: 042
     Dates: start: 20221003
  6. INFLECTRA [Suspect]
     Active Substance: INFLIXIMAB-DYYB
     Dosage: 5 MG/KG (500 MG), EVERY 8 WEEKS
     Route: 042
     Dates: start: 20230201
  7. INFLECTRA [Suspect]
     Active Substance: INFLIXIMAB-DYYB
     Dosage: 500 MG (5 MG/KG), EVERY 8 WEEKS
     Route: 042
     Dates: start: 20230401
  8. INFLECTRA [Suspect]
     Active Substance: INFLIXIMAB-DYYB
     Dosage: 500 MG, Q 6WEEKS
     Route: 042
     Dates: start: 20230513
  9. INFLECTRA [Suspect]
     Active Substance: INFLIXIMAB-DYYB
     Dosage: 500 MG, Q 6WEEKS
     Route: 042
     Dates: start: 20230623
  10. INFLECTRA [Suspect]
     Active Substance: INFLIXIMAB-DYYB
     Dosage: 500 MG, Q 6WEEKS
     Route: 042
     Dates: start: 20230623
  11. INFLECTRA [Suspect]
     Active Substance: INFLIXIMAB-DYYB
     Dosage: 500 MG, Q 6WEEKS
     Route: 042
     Dates: start: 20230915
  12. INFLECTRA [Suspect]
     Active Substance: INFLIXIMAB-DYYB
     Dosage: UNK, AFTER 6 WEEKS AND 1 DAY AFTER LAST INFUSION (EVERY 8 WEEKS)
     Route: 042
     Dates: start: 20231028
  13. ALTACE [Concomitant]
     Active Substance: RAMIPRIL
     Dosage: UNK
  14. ALTACE [Concomitant]
     Active Substance: RAMIPRIL
     Dosage: UNK
  15. ASPIRIN [Concomitant]
     Active Substance: ASPIRIN
     Dosage: UNK
  16. AZATHIOPRINE [Concomitant]
     Active Substance: AZATHIOPRINE
     Dosage: 150 MG, 1X/DAY
     Route: 065
     Dates: start: 20220408
  17. BENADRYL [Concomitant]
     Active Substance: DIPHENHYDRAMINE HYDROCHLORIDE
     Indication: Premedication
     Dosage: UNK
  18. CRESTOR [Concomitant]
     Active Substance: ROSUVASTATIN CALCIUM
     Dosage: UNK
  19. HYDROCHLOROTHIAZIDE [Concomitant]
     Active Substance: HYDROCHLOROTHIAZIDE
     Dosage: UNK
  20. PREDNISONE [Concomitant]
     Active Substance: PREDNISONE
     Dosage: UNK
  21. TYLENOL [Concomitant]
     Active Substance: ACETAMINOPHEN
     Indication: Premedication
     Dosage: UNK

REACTIONS (12)
  - Crohn^s disease [Not Recovered/Not Resolved]
  - Therapeutic response shortened [Unknown]
  - Pain [Recovered/Resolved]
  - Myalgia [Recovered/Resolved]
  - Bone pain [Recovered/Resolved]
  - Musculoskeletal stiffness [Recovered/Resolved]
  - Pain in extremity [Recovered/Resolved]
  - Influenza [Not Recovered/Not Resolved]
  - Off label use [Unknown]
  - Off label use [Unknown]
  - Intentional product use issue [Unknown]
  - Inappropriate schedule of product administration [Unknown]

NARRATIVE: CASE EVENT DATE: 20220101
